FAERS Safety Report 5032457-X (Version None)
Quarter: 2006Q2

REPORT INFORMATION
  Report Type: 
  Country: None (occurrence: None)
  Receive Date: 20060622
  Receipt Date: 20060420
  Transmission Date: 20061013
  Serious: Yes (Hospitalization)
  Sender: FDA-Public Use
  Company Number: HQWYE923021APR06

PATIENT
  Sex: Female

DRUGS (2)
  1. ENBREL [Suspect]
     Indication: RHEUMATOID ARTHRITIS
     Route: 058
     Dates: start: 20050801, end: 20060401
  2. RHEUMATREX [Concomitant]
     Route: 065
     Dates: start: 20060130

REACTIONS (2)
  - APPENDICITIS [None]
  - ILEUS [None]
